FAERS Safety Report 20918515 (Version 1)
Quarter: 2022Q2

REPORT INFORMATION
  Report Type: Report from Study
  Country: MX (occurrence: MX)
  Receive Date: 20220606
  Receipt Date: 20220606
  Transmission Date: 20220721
  Serious: Yes (Other)
  Sender: FDA-Public Use
  Company Number: MX-NOVARTISPH-NVSC2022MX128902

PATIENT
  Age: 35 Year
  Sex: Female

DRUGS (1)
  1. TASIGNA [Suspect]
     Active Substance: NILOTINIB
     Indication: Chronic myeloid leukaemia
     Dosage: UNK
     Route: 048

REACTIONS (5)
  - Angina pectoris [Unknown]
  - Influenza [Not Recovered/Not Resolved]
  - Pharyngeal disorder [Unknown]
  - Feeling abnormal [Unknown]
  - Injury [Unknown]

NARRATIVE: CASE EVENT DATE: 20220530
